FAERS Safety Report 24453532 (Version 2)
Quarter: 2024Q4

REPORT INFORMATION
  Report Type: Report from Study
  Country: JP (occurrence: JP)
  Receive Date: 20241017
  Receipt Date: 20241018
  Transmission Date: 20250115
  Serious: No
  Sender: ROCHE
  Company Number: JP-ROCHE-3339940

PATIENT
  Age: 52 Year
  Sex: Female

DRUGS (1)
  1. RITUXIMAB [Suspect]
     Active Substance: RITUXIMAB
     Indication: Scleroderma
     Dosage: ON 09/NOV/2022, SHE RECEIVED SECOND DOSE OF RITUXIMAB, ON 21/NOV/2022, SHE RECEIVED THIRD DOSE AND O
     Route: 041
     Dates: start: 20221102

REACTIONS (1)
  - Infusion related reaction [Recovered/Resolved]
